FAERS Safety Report 20041713 (Version 1)
Quarter: 2021Q4

REPORT INFORMATION
  Report Type: Spontaneous
  Country: JP (occurrence: JP)
  Receive Date: 20211108
  Receipt Date: 20211108
  Transmission Date: 20220304
  Serious: Yes (Other)
  Sender: FDA-Public Use
  Company Number: JP-MTPC-MTPC2021-0027215

PATIENT
  Age: 91 Year
  Sex: Male

DRUGS (8)
  1. EDARAVONE [Suspect]
     Active Substance: EDARAVONE
     Indication: Cerebral infarction
     Dosage: 30 MILLIGRAM, BID
     Route: 041
     Dates: start: 20211019, end: 20211026
  2. ARGATROBAN [Suspect]
     Active Substance: ARGATROBAN
     Dosage: 60 MILLIGRAM, QD
     Route: 041
     Dates: start: 20211020, end: 20211022
  3. CITICOLINE [Concomitant]
     Active Substance: CITICOLINE
     Dosage: 1000 MILLIGRAM, QD
     Route: 051
     Dates: start: 20211019
  4. ROCEPHIN [Concomitant]
     Active Substance: CEFTRIAXONE SODIUM
     Dosage: 2 GRAM, QD
     Route: 065
     Dates: start: 20211022
  5. POTASSIUM CHLORIDE\SODIUM CHLORIDE\SODIUM LACTATE [Concomitant]
     Active Substance: POTASSIUM CHLORIDE\SODIUM CHLORIDE\SODIUM LACTATE
     Route: 041
  6. Adona [Concomitant]
     Route: 065
  7. TRANSAMIN [Concomitant]
     Active Substance: TRANEXAMIC ACID
     Route: 065
  8. MENATETRENONE [Concomitant]
     Active Substance: MENATETRENONE
     Route: 065

REACTIONS (2)
  - Hepatic function abnormal [Recovering/Resolving]
  - Blood creatine phosphokinase increased [Recovering/Resolving]

NARRATIVE: CASE EVENT DATE: 20211026
